FAERS Safety Report 5468743-9 (Version None)
Quarter: 2007Q3

REPORT INFORMATION
  Report Type: 
  Country: None (occurrence: None)
  Receive Date: 20070926
  Receipt Date: 20070917
  Transmission Date: 20080115
  Serious: Yes (Hospitalization, Other)
  Sender: FDA-Public Use
  Company Number: US-PFIZER INC-2006118809

PATIENT
  Sex: Female
  Weight: 61.2 kg

DRUGS (3)
  1. CELEBREX [Suspect]
     Indication: ARTHRITIS
  2. BEXTRA [Suspect]
     Indication: ARTHRITIS
  3. VIOXX [Suspect]
     Indication: ARTHRITIS

REACTIONS (6)
  - CARDIOVASCULAR DISORDER [None]
  - HEART RATE IRREGULAR [None]
  - MYOCARDIAL INFARCTION [None]
  - OEDEMA [None]
  - PANIC DISORDER [None]
  - RHEUMATOID ARTHRITIS [None]
